FAERS Safety Report 5418341-8 (Version None)
Quarter: 2007Q3

REPORT INFORMATION
  Report Type: 
  Country: None (occurrence: None)
  Receive Date: 20070817
  Receipt Date: 20070806
  Transmission Date: 20080115
  Serious: Yes (Other)
  Sender: FDA-Public Use
  Company Number: US-JNJFOC-20070801520

PATIENT
  Sex: Female
  Weight: 81.65 kg

DRUGS (14)
  1. FENTANYL TRANSDERMAL SYSTEM [Suspect]
     Indication: SPINAL COLUMN STENOSIS
     Dosage: 100MCG + 25MCG
     Route: 062
  2. FENTANYL TRANSDERMAL SYSTEM [Suspect]
     Indication: SPINAL COLUMN STENOSIS
     Route: 062
  3. LEXAPRO [Concomitant]
     Indication: DEPRESSION
     Route: 048
  4. KEPPRA [Concomitant]
     Indication: CONVULSION
     Route: 048
  5. OXYBUTYNIN CHLORIDE [Concomitant]
     Indication: URINARY TRACT DISORDER
     Route: 048
  6. VESICARE [Concomitant]
     Indication: URINARY TRACT DISORDER
     Route: 048
  7. HYDROCODONE BITARTRATE [Concomitant]
     Indication: PAIN
     Route: 048
  8. PERCOCET [Concomitant]
     Indication: PAIN
     Route: 048
  9. PROMETHAZINE [Concomitant]
     Indication: STOMACH DISCOMFORT
     Route: 048
  10. KLONOPIN [Concomitant]
     Indication: CONVULSION
     Route: 048
  11. DIAZEPAM [Concomitant]
     Indication: ANXIETY
     Route: 048
  12. PHENOBARBITAL TAB [Concomitant]
     Indication: CONVULSION
     Route: 048
  13. LOPERAMIDE HCL [Concomitant]
     Indication: DIARRHOEA
     Route: 048
  14. MAXALT [Concomitant]
     Indication: MIGRAINE
     Route: 048

REACTIONS (8)
  - AMNESIA [None]
  - CHRONIC OBSTRUCTIVE PULMONARY DISEASE [None]
  - DRUG ADMINISTERED AT INAPPROPRIATE SITE [None]
  - FALL [None]
  - INSOMNIA [None]
  - ORAL FUNGAL INFECTION [None]
  - RESTLESS LEGS SYNDROME [None]
  - WEIGHT DECREASED [None]
